FAERS Safety Report 25111546 (Version 1)
Quarter: 2025Q1

REPORT INFORMATION
  Report Type: Spontaneous
  Country: EE (occurrence: EE)
  Receive Date: 20250324
  Receipt Date: 20250324
  Transmission Date: 20250408
  Serious: Yes (Other)
  Sender: BAYER HEALTHCARE PHARMACEUTICALS INC.
  Company Number: EE-BAYER-2024A070097

PATIENT
  Age: 22 Year
  Sex: Female
  Weight: 157 kg

DRUGS (1)
  1. KYLEENA [Suspect]
     Active Substance: LEVONORGESTREL
     Dosage: 17.5?G/DAY
     Route: 015
     Dates: start: 20210929, end: 202405

REACTIONS (5)
  - Pregnancy with contraceptive device [Recovered/Resolved]
  - Polyhydramnios [None]
  - Drug ineffective [None]
  - Hypertension [None]
  - Obesity [None]
